FAERS Safety Report 9263799 (Version 1)
Quarter: 2013Q2

REPORT INFORMATION
  Report Type: Spontaneous
  Country: US (occurrence: None)
  Receive Date: 20130429
  Receipt Date: 20130429
  Transmission Date: 20140414
  Serious: Yes (Other)
  Sender: FDA-Public Use
  Company Number: None

PATIENT
  Age: 59 Year
  Sex: Female
  Weight: 68.04 kg

DRUGS (12)
  1. METOPROLOL [Suspect]
     Indication: PRESYNCOPE
     Route: 048
  2. METOPROLOL [Suspect]
     Indication: BLOOD PRESSURE INCREASED
     Route: 048
  3. LISINOPRIL [Suspect]
     Indication: BLOOD PRESSURE INCREASED
     Route: 048
  4. MS CONTIN [Concomitant]
  5. SINGULAR [Concomitant]
  6. FIORINAL [Concomitant]
  7. FLONAISE [Concomitant]
  8. NORCO [Concomitant]
  9. VITAMIN D [Concomitant]
  10. MACROBID [Concomitant]
  11. HYDROXYZINE [Concomitant]
  12. ZYRTEC [Concomitant]

REACTIONS (4)
  - Muscle spasms [None]
  - Muscle spasms [None]
  - Muscle spasms [None]
  - Muscle spasms [None]
